FAERS Safety Report 12548987 (Version 4)
Quarter: 2016Q3

REPORT INFORMATION
  Report Type: Spontaneous
  Country: CN (occurrence: CN)
  Receive Date: 20160712
  Receipt Date: 20160727
  Transmission Date: 20161109
  Serious: Yes (Other)
  Sender: FDA-Public Use
  Company Number: CN-SA-2016SA115009

PATIENT
  Sex: Female

DRUGS (2)
  1. AMARYL [Suspect]
     Active Substance: GLIMEPIRIDE
     Indication: DIABETES MELLITUS
     Dosage: 1 TAB-QD?0.5 TAB QD
     Route: 048
     Dates: start: 20160613
  2. AMARYL [Suspect]
     Active Substance: GLIMEPIRIDE
     Indication: DIABETES MELLITUS
     Dosage: 1 TAB-QD?0.5 TAB QD
     Route: 048
     Dates: start: 201606, end: 20160619

REACTIONS (4)
  - Vision blurred [Recovering/Resolving]
  - Hypoglycaemia [Recovered/Resolved]
  - Condition aggravated [Unknown]
  - Macular degeneration [Not Recovered/Not Resolved]

NARRATIVE: CASE EVENT DATE: 201606
